FAERS Safety Report 21623648 (Version 2)
Quarter: 2022Q4

REPORT INFORMATION
  Report Type: Spontaneous
  Country: US (occurrence: US)
  Receive Date: 20221121
  Receipt Date: 20221201
  Transmission Date: 20230113
  Serious: Yes (Hospitalization)
  Sender: FDA-Public Use
  Company Number: US-JUBILANT CADISTA PHARMACEUTICALS-2022JUB00432

PATIENT
  Age: 57 Year
  Sex: Male

DRUGS (3)
  1. AMLODIPINE [Suspect]
     Active Substance: AMLODIPINE BESYLATE
     Dosage: 20 TABLETS
     Route: 048
  2. BENAZEPRIL [Suspect]
     Active Substance: BENAZEPRIL HYDROCHLORIDE
     Dosage: 20 TABLETS
     Route: 048
  3. GABAPENTIN [Suspect]
     Active Substance: GABAPENTIN
     Dosage: 10 TABLETS
     Route: 048

REACTIONS (9)
  - Shock [Recovered/Resolved]
  - Lactic acidosis [Recovered/Resolved]
  - Electrolyte imbalance [Recovered/Resolved]
  - Renal impairment [Recovered/Resolved]
  - Cardiac arrest [Recovered/Resolved]
  - Mini-tracheostomy [Recovered/Resolved]
  - Renal replacement therapy [Recovered/Resolved]
  - Toxicity to various agents [Recovered/Resolved]
  - Hypotension [Recovered/Resolved]
